FAERS Safety Report 7675315-4 (Version None)
Quarter: 2011Q3

REPORT INFORMATION
  Report Type: 
  Country: None (occurrence: None)
  Receive Date: 20110810
  Receipt Date: 20110803
  Transmission Date: 20111222
  Serious: Yes (Death, Life-Threatening, Hospitalization)
  Sender: FDA-Public Use
  Company Number: JP-ELI_LILLY_AND_COMPANY-JP201002003364

PATIENT
  Sex: Male
  Weight: 63 kg

DRUGS (9)
  1. MAGNESIUM SULFATE [Concomitant]
     Indication: CONSTIPATION
     Dosage: 990 MG, DAILY (1/D)
     Dates: start: 20090909
  2. CELECOXIB [Concomitant]
     Indication: PAIN
     Dosage: 400 MG, DAILY (1/D)
     Route: 048
     Dates: start: 20090909
  3. ALLOPURINOL [Concomitant]
     Indication: HYPERURICAEMIA
     Dosage: 200 MG, DAILY (1/D)
     Route: 048
     Dates: start: 20090710
  4. URALYT                             /01779901/ [Concomitant]
     Indication: HYPERURICAEMIA
     Dosage: 3 D/F, DAILY (1/D)
     Route: 048
     Dates: start: 20090730
  5. METHYCOBAL [Concomitant]
     Dosage: 500 UG, OTHER
     Route: 030
     Dates: start: 20091216
  6. GASMOTIN [Concomitant]
     Indication: CONSTIPATION
     Dosage: 15 MG, DAILY (1/D)
     Route: 048
     Dates: start: 20091224
  7. METHYCOBAL [Concomitant]
     Dosage: 1 MG, OTHER
     Route: 030
     Dates: start: 20091224
  8. PANVITAN [Concomitant]
     Dosage: 2 G, DAILY (1/D)
     Route: 048
     Dates: start: 20091216, end: 20100209
  9. ALIMTA [Suspect]
     Indication: LUNG ADENOCARCINOMA STAGE III
     Dosage: 860 MG, OTHER
     Route: 042
     Dates: start: 20100106, end: 20100127

REACTIONS (4)
  - CONSTIPATION [None]
  - INTERSTITIAL LUNG DISEASE [None]
  - HAEMATOTOXICITY [None]
  - DECREASED APPETITE [None]
